FAERS Safety Report 22345395 (Version 1)
Quarter: 2023Q2

REPORT INFORMATION
  Report Type: Spontaneous
  Country: CZ (occurrence: CZ)
  Receive Date: 20230519
  Receipt Date: 20230519
  Transmission Date: 20230722
  Serious: Yes (Hospitalization, Other)
  Sender: FDA-Public Use
  Company Number: None

PATIENT
  Age: 23 Year
  Sex: Female
  Weight: 60 kg

DRUGS (2)
  1. CLINDAMYCIN PHOSPHATE [Suspect]
     Active Substance: CLINDAMYCIN PHOSPHATE
     Indication: Animal scratch
     Dosage: UNK
     Dates: start: 20230406
  2. TETAVAX [Suspect]
     Active Substance: TETANUS TOXOIDS
     Indication: Tetanus immunisation
     Dosage: 1 DF, SINGLE
     Route: 030
     Dates: start: 20230406, end: 20230406

REACTIONS (7)
  - Lymphadenitis [Not Recovered/Not Resolved]
  - Pruritus [Not Recovered/Not Resolved]
  - Puncture site abscess [Recovering/Resolving]
  - Rash [Unknown]
  - Fatigue [Unknown]
  - Puncture site erythema [Recovered/Resolved]
  - Puncture site oedema [Recovered/Resolved]

NARRATIVE: CASE EVENT DATE: 20230401
